FAERS Safety Report 4898488-5 (Version None)
Quarter: 2006Q1

REPORT INFORMATION
  Report Type: 
  Country: None (occurrence: None)
  Receive Date: 20060202
  Receipt Date: 20060124
  Transmission Date: 20060701
  Serious: Yes (Hospitalization)
  Sender: FDA-Public Use
  Company Number: US-JNJFOC-20051105825

PATIENT
  Age: 38 Year
  Sex: Female
  Weight: 56.25 kg

DRUGS (13)
  1. REMICADE [Suspect]
     Route: 042
  2. REMICADE [Suspect]
     Indication: CROHN'S DISEASE
     Route: 042
  3. DILANDID [Concomitant]
     Indication: GASTROINTESTINAL PAIN
     Dosage: 1-2 MG
     Route: 042
  4. ATIVAN [Concomitant]
     Dosage: 0.5 MG DAILY, AS NEEDED
  5. ELAVIL [Concomitant]
     Dosage: 100 MG AT BEDTIME
  6. AMBIEN [Concomitant]
     Dosage: 10 MG AT BEDTIME
  7. PERCOCET [Concomitant]
  8. PERCOCET [Concomitant]
     Dosage: 2 IN 4-6 HOURS, AS NEEDED
  9. ZOFRAN [Concomitant]
  10. LEXAPRO [Concomitant]
  11. CALCIUM GLUCONATE [Concomitant]
     Dosage: 2-3 IN 1 DAY
  12. HYDROMORPHONE HCL [Concomitant]
     Indication: GASTROINTESTINAL PAIN
     Route: 042
  13. HYDROCORTISONE [Concomitant]
     Indication: PREMEDICATION
     Route: 042

REACTIONS (2)
  - PERICARDIAL EFFUSION [None]
  - VENOUS OCCLUSION [None]
